FAERS Safety Report 23581529 (Version 3)
Quarter: 2024Q2

REPORT INFORMATION
  Report Type: Spontaneous
  Country: US (occurrence: US)
  Receive Date: 20240229
  Receipt Date: 20240424
  Transmission Date: 20240715
  Serious: Yes (Other)
  Sender: FDA-Public Use
  Company Number: US-PFIZER INC-PV202300144821

PATIENT
  Age: 65 Year
  Sex: Female

DRUGS (1)
  1. PREMARIN [Suspect]
     Active Substance: ESTROGENS, CONJUGATED
     Dosage: 6 DAYS A WEEK/PLEASE TAKE ONE TABLET 6 DAYS A WEEK

REACTIONS (3)
  - Drug dependence [Unknown]
  - Off label use [Unknown]
  - Product prescribing error [Unknown]
